FAERS Safety Report 5322234-4 (Version None)
Quarter: 2007Q2

REPORT INFORMATION
  Report Type: 
  Country: None (occurrence: None)
  Receive Date: 20070511
  Receipt Date: 20070503
  Transmission Date: 20071010
  Serious: Yes (Other)
  Sender: FDA-Public Use
  Company Number: GB-ROCHE-496770

PATIENT
  Age: 66 Year
  Sex: Female
  Weight: 83.8 kg

DRUGS (4)
  1. XENICAL [Suspect]
     Indication: OBESITY
     Route: 048
     Dates: start: 20070412, end: 20070503
  2. GTN-S [Concomitant]
     Indication: ANGINA PECTORIS
     Route: 060
  3. UNSPECIFIED DRUG [Concomitant]
     Indication: HYPERTENSION
  4. UNSPECIFIED DRUG [Concomitant]

REACTIONS (1)
  - PARAESTHESIA [None]
